FAERS Safety Report 7411653-8 (Version None)
Quarter: 2011Q2

REPORT INFORMATION
  Report Type: 
  Country: None (occurrence: None)
  Receive Date: 20110413
  Receipt Date: 20101012
  Transmission Date: 20111010
  Serious: Yes (Hospitalization)
  Sender: FDA-Public Use
  Company Number: US-BRISTOL-MYERS SQUIBB COMPANY-15331481

PATIENT
  Sex: Male

DRUGS (2)
  1. ERBITUX [Suspect]
     Dosage: FIRST DOSE
     Dates: start: 20101011
  2. CHEMOTHERAPY [Concomitant]

REACTIONS (1)
  - CARDIO-RESPIRATORY ARREST [None]
